FAERS Safety Report 11419740 (Version 1)
Quarter: 2015Q3

REPORT INFORMATION
  Report Type: Spontaneous
  Country: BR (occurrence: BR)
  Receive Date: 20150826
  Receipt Date: 20150826
  Transmission Date: 20151125
  Serious: Yes (Other)
  Sender: FDA-Public Use
  Company Number: BR-BAYER-2015-402383

PATIENT
  Sex: Female

DRUGS (1)
  1. AVALOX [Suspect]
     Active Substance: MOXIFLOXACIN HYDROCHLORIDE
     Dosage: 1 DF, QD
     Dates: start: 20150812

REACTIONS (2)
  - Blood pressure fluctuation [Not Recovered/Not Resolved]
  - Chromatopsia [Not Recovered/Not Resolved]

NARRATIVE: CASE EVENT DATE: 20150813
